FAERS Safety Report 5188604-2 (Version None)
Quarter: 2006Q4

REPORT INFORMATION
  Report Type: 
  Country: None (occurrence: None)
  Receive Date: 20061214
  Receipt Date: 20061128
  Transmission Date: 20070319
  Serious: Yes (Other)
  Sender: FDA-Public Use
  Company Number: DSA_29057_2006

PATIENT
  Sex: Female

DRUGS (5)
  1. ENALAPRIL MALEATE [Suspect]
     Dosage: DF
  2. APROTININ [Suspect]
     Indication: HAEMORRHAGE CONTROL
     Dosage: 1.4 MG ONCE IV
     Route: 042
  3. APROTININ [Suspect]
     Indication: HAEMORRHAGE CONTROL
     Dosage: 280 MG CON IV
     Route: 042
  4. APROTININ [Suspect]
     Indication: HAEMORRHAGE CONTROL
     Dosage: 70 MG CON IV
     Route: 042
  5. ANESTHESIA [Concomitant]

REACTIONS (2)
  - POSTOPERATIVE RENAL FAILURE [None]
  - RENAL FAILURE ACUTE [None]
